FAERS Safety Report 5826061-0 (Version None)
Quarter: 2008Q3

REPORT INFORMATION
  Report Type: 
  Country: None (occurrence: None)
  Receive Date: 20080729
  Receipt Date: 20080721
  Transmission Date: 20090109
  Serious: Yes (Hospitalization)
  Sender: FDA-Public Use
  Company Number: FR-JNJFOC-20080704797

PATIENT
  Sex: Female

DRUGS (8)
  1. RISPERDAL [Suspect]
     Indication: DRUG USE FOR UNKNOWN INDICATION
     Route: 048
  2. EXELON [Suspect]
  3. EXELON [Suspect]
     Indication: DEMENTIA WITH LEWY BODIES
  4. NIDREL [Concomitant]
     Route: 048
  5. MICARDIS [Concomitant]
     Route: 048
  6. KARDEGIC [Concomitant]
     Route: 048
  7. CACIT VITAMIN D3 [Concomitant]
     Route: 048
  8. DOLIPRANE [Concomitant]
     Route: 048

REACTIONS (3)
  - DEMENTIA WITH LEWY BODIES [None]
  - DISTURBANCE IN ATTENTION [None]
  - HOSPITALISATION [None]
